FAERS Safety Report 20746585 (Version 3)
Quarter: 2022Q4

REPORT INFORMATION
  Report Type: Report from Study
  Country: US (occurrence: US)
  Receive Date: 20220425
  Receipt Date: 20221204
  Transmission Date: 20230113
  Serious: Yes (Other)
  Sender: FDA-Public Use
  Company Number: US-UCBSA-2022013058

PATIENT
  Age: 71 Year
  Sex: Male

DRUGS (4)
  1. LEVETIRACETAM [Suspect]
     Active Substance: LEVETIRACETAM
     Indication: Epilepsy
     Dosage: 2000 MILLIGRAM, 2X/DAY (BID)
  2. LEVETIRACETAM [Suspect]
     Active Substance: LEVETIRACETAM
     Indication: Seizure
     Dosage: 500MG TAKE 8 TABS EVERY DAY
  3. LEVETIRACETAM [Concomitant]
     Active Substance: LEVETIRACETAM
     Indication: Product used for unknown indication
     Dosage: GENERIC
  4. CANNABIS SATIVA SUBSP. INDICA TOP [Concomitant]
     Active Substance: CANNABIS SATIVA SUBSP. INDICA TOP
     Indication: Seizure

REACTIONS (10)
  - Seizure [Not Recovered/Not Resolved]
  - Brain injury [Not Recovered/Not Resolved]
  - Oral surgery [Unknown]
  - Illness [Not Recovered/Not Resolved]
  - Abscess oral [Unknown]
  - Therapeutic product effect incomplete [Unknown]
  - Product availability issue [Unknown]
  - Therapy interrupted [Unknown]
  - Product substitution issue [Unknown]
  - Frustration tolerance decreased [Unknown]

NARRATIVE: CASE EVENT DATE: 20221001
